FAERS Safety Report 21058861 (Version 1)
Quarter: 2022Q3

REPORT INFORMATION
  Report Type: Spontaneous
  Country: US (occurrence: US)
  Receive Date: 20220708
  Receipt Date: 20220708
  Transmission Date: 20221027
  Serious: No
  Sender: FDA-Public Use
  Company Number: US-JAZZ-2022-US-006787

PATIENT
  Age: 66 Year
  Sex: Male

DRUGS (1)
  1. ZEPZELCA [Suspect]
     Active Substance: LURBINECTEDIN
     Indication: Non-small cell lung cancer
     Dosage: 3.2 MILLIGRAM/SQ. METER, RECEIVED 6.1MG

REACTIONS (2)
  - Extravasation [Unknown]
  - Off label use [Unknown]
